FAERS Safety Report 7992421-5 (Version None)
Quarter: 2011Q4

REPORT INFORMATION
  Report Type: 
  Country: None (occurrence: None)
  Receive Date: 20111219
  Receipt Date: 20110506
  Transmission Date: 20120403
  Serious: No
  Sender: FDA-Public Use
  Company Number: US-ASTRAZENECA-2011SE27263

PATIENT
  Age: 68 Year
  Sex: Female

DRUGS (2)
  1. CRESTOR [Suspect]
     Route: 048
     Dates: start: 20080503
  2. POTASSIUM CHLORIDE [Concomitant]

REACTIONS (3)
  - PAIN IN EXTREMITY [None]
  - WALKING AID USER [None]
  - ABASIA [None]
